FAERS Safety Report 5524214-2 (Version None)
Quarter: 2007Q4

REPORT INFORMATION
  Report Type: 
  Country: None (occurrence: None)
  Receive Date: 20071121
  Receipt Date: 20071109
  Transmission Date: 20080405
  Serious: Yes (Other)
  Sender: FDA-Public Use
  Company Number: US-PFIZER INC-2007087792

PATIENT
  Sex: Female
  Weight: 68.181 kg

DRUGS (9)
  1. CHANTIX [Suspect]
     Indication: SMOKING CESSATION THERAPY
     Dates: start: 20071004, end: 20071010
  2. CHANTIX [Suspect]
     Indication: TOBACCO ABUSE
  3. ALLEGRA [Concomitant]
     Indication: HYPERSENSITIVITY
  4. CALCIUM [Concomitant]
  5. ASCORBIC ACID [Concomitant]
  6. NIFEDIPINE [Concomitant]
     Indication: HYPERTENSION
  7. ETODOLAC [Concomitant]
     Indication: ARTHRITIS
     Dosage: TEXT:400MG
     Route: 048
  8. ZOCOR [Concomitant]
  9. PROCARDIA XL [Concomitant]
     Dosage: TEXT:90 MG

REACTIONS (5)
  - ASTHENIA [None]
  - DECREASED APPETITE [None]
  - FLATULENCE [None]
  - MOBILITY DECREASED [None]
  - NAUSEA [None]
